FAERS Safety Report 21870717 (Version 2)
Quarter: 2023Q1

REPORT INFORMATION
  Report Type: Report from Study
  Country: US (occurrence: US)
  Receive Date: 20230117
  Receipt Date: 20230330
  Transmission Date: 20230418
  Serious: Yes (Death, Hospitalization)
  Sender: FDA-Public Use
  Company Number: US-ABBVIE-4271933

PATIENT
  Age: 77 Year
  Sex: Female

DRUGS (1)
  1. SKYRIZI [Suspect]
     Active Substance: RISANKIZUMAB-RZAA
     Indication: Crohn^s disease
     Route: 058
     Dates: start: 20221015

REACTIONS (9)
  - Chronic obstructive pulmonary disease [Fatal]
  - Blood potassium decreased [Unknown]
  - Parkinson^s disease [Fatal]
  - Oedema peripheral [Unknown]
  - Diarrhoea [Unknown]
  - Asthenia [Unknown]
  - Dehydration [Unknown]
  - Cardiac failure congestive [Fatal]
  - Type 2 diabetes mellitus [Fatal]

NARRATIVE: CASE EVENT DATE: 20221214
